FAERS Safety Report 13591046 (Version 1)
Quarter: 2017Q2

REPORT INFORMATION
  Report Type: Spontaneous
  Country: US (occurrence: US)
  Receive Date: 20170517
  Receipt Date: 20170517
  Transmission Date: 20170830
  Serious: Yes (Other)
  Sender: FDA-Public Use
  Company Number: None

PATIENT
  Age: 62 Year
  Sex: Female

DRUGS (1)
  1. GENERIC VALIUM [Suspect]
     Active Substance: DIAZEPAM
     Indication: MUSCLE SPASTICITY
     Route: 048
     Dates: start: 2010

REACTIONS (3)
  - Presyncope [None]
  - Migraine [None]
  - Cold sweat [None]

NARRATIVE: CASE EVENT DATE: 20111212
